FAERS Safety Report 24072607 (Version 1)
Quarter: 2024Q3

REPORT INFORMATION
  Report Type: Spontaneous
  Country: US (occurrence: US)
  Receive Date: 20240710
  Receipt Date: 20240710
  Transmission Date: 20241017
  Serious: Yes (Other)
  Sender: MYLAN
  Company Number: US-MYLANLABS-2024M1063154

PATIENT
  Age: 51 Year
  Sex: Female

DRUGS (2)
  1. OXALIPLATIN [Suspect]
     Active Substance: OXALIPLATIN
     Indication: Ovarian cancer
     Dosage: 130 MILLIGRAM/SQ. METER,TWO CYCLES  ON DAYS 1-14
     Route: 048
  2. CAPECITABINE [Suspect]
     Active Substance: CAPECITABINE
     Indication: Ovarian cancer
     Dosage: 1000 MILLIGRAM/SQ. METER,TWO CYCLES ON DAYS 1 TO 14.
     Route: 048

REACTIONS (1)
  - Drug ineffective [Unknown]
